FAERS Safety Report 4505491-3 (Version None)
Quarter: 2004Q4

REPORT INFORMATION
  Report Type: 
  Country: None (occurrence: None)
  Receive Date: 20041117
  Receipt Date: 20041117
  Transmission Date: 20050328
  Serious: No
  Sender: FDA-Public Use
  Company Number: None

PATIENT
  Sex: Male
  Weight: 74.8435 kg

DRUGS (1)
  1. AORTIC VALVE HOMOGRAFT [Suspect]

REACTIONS (3)
  - INFLAMMATION [None]
  - SCAR [None]
  - TRANSPLANT FAILURE [None]
